FAERS Safety Report 8138947-5 (Version None)
Quarter: 2012Q1

REPORT INFORMATION
  Report Type: 
  Country: None (occurrence: None)
  Receive Date: 20120215
  Receipt Date: 20120207
  Transmission Date: 20120608
  Serious: Yes (Other)
  Sender: FDA-Public Use
  Company Number: CZ-ABBOTT-11P-217-0865290-00

PATIENT
  Sex: Female
  Weight: 65 kg

DRUGS (2)
  1. MELOXICAM [Concomitant]
     Indication: PRODUCT USED FOR UNKNOWN INDICATION
  2. HUMIRA [Suspect]
     Indication: PSORIATIC ARTHROPATHY
     Route: 058
     Dates: start: 20080822, end: 20110901

REACTIONS (14)
  - DEPRESSION [None]
  - NERVOUSNESS [None]
  - AUTOIMMUNE DISORDER [None]
  - INFLAMMATION [None]
  - EMOTIONAL POVERTY [None]
  - APPETITE DISORDER [None]
  - AGEUSIA [None]
  - PSORIASIS [None]
  - ANOSMIA [None]
  - INFECTION [None]
  - THIRST DECREASED [None]
  - ANHEDONIA [None]
  - PSYCHOTIC DISORDER [None]
  - ANXIETY [None]
